FAERS Safety Report 5882237-8 (Version None)
Quarter: 2008Q3

REPORT INFORMATION
  Report Type: 
  Country: None (occurrence: None)
  Receive Date: 20080912
  Receipt Date: 20080821
  Transmission Date: 20090109
  Serious: No
  Sender: FDA-Public Use
  Company Number: US-ABBOTT-08P-163-0466560-00

PATIENT
  Sex: Female
  Weight: 59.02 kg

DRUGS (14)
  1. HUMIRA [Suspect]
     Indication: RHEUMATOID ARTHRITIS
     Dates: start: 20080401, end: 20080401
  2. HUMIRA [Suspect]
     Dates: start: 20080401, end: 20080501
  3. HUMIRA [Suspect]
     Dates: start: 20080501
  4. IBANDRONATE SODIUM [Concomitant]
     Indication: OSTEOPENIA
     Dosage: 150 MG MONTHL
     Route: 048
     Dates: start: 20080101
  5. PROMPOR [Concomitant]
     Indication: HORMONE THERAPY
     Dosage: 0.3/1.5 MG DAILY
     Route: 048
     Dates: start: 20080101
  6. OLOPATADINE HYDROCHLORIDE [Concomitant]
     Indication: DRY EYE
     Dosage: 0.1%, 1 DROP OR MORE EACH EYE AS NEEDED
     Route: 061
     Dates: start: 20050101
  7. OLOPATADINE HYDROCHLORIDE [Concomitant]
     Indication: RHEUMATOID ARTHRITIS
  8. ATENOLOL [Concomitant]
     Indication: HYPERTENSION
     Dosage: 12.5 MG DAILY
     Route: 048
     Dates: start: 20060101
  9. PANTOPRAZOLE [Concomitant]
     Indication: GASTROOESOPHAGEAL REFLUX PROPHYLAXIS
     Dosage: 40 MG DAILY
     Route: 048
     Dates: start: 20020101
  10. NABUMETONE [Concomitant]
     Indication: ANTIINFLAMMATORY THERAPY
     Route: 048
     Dates: start: 19930101
  11. NABUMETONE [Concomitant]
     Indication: RHEUMATOID ARTHRITIS
  12. FEXOFENADINE [Concomitant]
     Indication: ANTIALLERGIC THERAPY
     Route: 048
     Dates: start: 20050101
  13. FEXOFENADINE [Concomitant]
     Indication: RASH
  14. HYDROXYZINE HYDROCHLORIDE [Concomitant]
     Indication: MIGRAINE
     Route: 048
     Dates: start: 20060101

REACTIONS (3)
  - ALOPECIA [None]
  - NECK PAIN [None]
  - PAIN [None]
